FAERS Safety Report 6983688-0 (Version None)
Quarter: 2010Q3

REPORT INFORMATION
  Report Type: 
  Country: None (occurrence: None)
  Receive Date: 20100914
  Receipt Date: 20051125
  Transmission Date: 20110219
  Serious: Yes (Hospitalization)
  Sender: FDA-Public Use
  Company Number: US-WYE-H07147408

PATIENT
  Sex: Female

DRUGS (3)
  1. ADVIL LIQUI-GELS [Suspect]
     Dosage: 45 TABLETS X 1
     Route: 048
     Dates: start: 20000823, end: 20000823
  2. CELEXA [Concomitant]
     Dosage: 1 TABLET X 1
     Route: 048
  3. ALEVE (CAPLET) [Suspect]
     Dosage: 15 TABLETS X 1
     Route: 048
     Dates: start: 20000823, end: 20000823

REACTIONS (2)
  - OVERDOSE [None]
  - VOMITING [None]
